FAERS Safety Report 14312412 (Version 1)
Quarter: 2017Q4

REPORT INFORMATION
  Report Type: Report from Study
  Country: DK (occurrence: DK)
  Receive Date: 20171221
  Receipt Date: 20171221
  Transmission Date: 20180321
  Serious: Yes (Other)
  Sender: FDA-Public Use
  Company Number: DK-CIPLA LTD.-2017DK25369

PATIENT

DRUGS (3)
  1. IRINOTECAN [Suspect]
     Active Substance: IRINOTECAN
     Indication: ANAPLASTIC OLIGODENDROGLIOMA
     Dosage: 340 MG/M2 OR 125 MG/M2 (FOR EVERY 2 WEEKS)
     Route: 042
  2. ATROPINE. [Suspect]
     Active Substance: ATROPINE
     Indication: PROPHYLAXIS
     Dosage: 1 MG, GIVEN 10 MINUTES PRIOR TO IRINOTECAN
     Route: 058
  3. BEVACIZUMAB. [Suspect]
     Active Substance: BEVACIZUMAB
     Indication: ANAPLASTIC OLIGODENDROGLIOMA
     Dosage: 10 MG/KG,FOR EVERY 2 WEEKS
     Route: 042

REACTIONS (1)
  - Disease progression [Unknown]
